FAERS Safety Report 5709392-4 (Version None)
Quarter: 2008Q2

REPORT INFORMATION
  Report Type: 
  Country: None (occurrence: None)
  Receive Date: 20080418
  Receipt Date: 20080414
  Transmission Date: 20081010
  Serious: Yes (Other)
  Sender: FDA-Public Use
  Company Number: US-BAYER-200710471BWH

PATIENT
  Sex: Female

DRUGS (3)
  1. SORAFENIB [Suspect]
     Indication: DRUG USE FOR UNKNOWN INDICATION
     Dosage: TOTAL DAILY DOSE: 800 MG  UNIT DOSE: 200 MG
     Route: 048
     Dates: start: 20061016
  2. SORAFENIB [Suspect]
     Dosage: AS USED: 400-200 MG  UNIT DOSE: 200 MG
     Route: 048
  3. SORAFENIB [Suspect]
     Dosage: TOTAL DAILY DOSE: 400 MG  UNIT DOSE: 200 MG
     Route: 048

REACTIONS (3)
  - ACTINIC KERATOSIS [None]
  - RASH [None]
  - SQUAMOUS CELL CARCINOMA [None]
